FAERS Safety Report 5747999-9 (Version None)
Quarter: 2008Q2

REPORT INFORMATION
  Report Type: 
  Country: None (occurrence: None)
  Receive Date: 20080523
  Receipt Date: 20080512
  Transmission Date: 20081010
  Serious: Yes (Death)
  Sender: FDA-Public Use
  Company Number: JP-ELI_LILLY_AND_COMPANY-JP200805003150

PATIENT
  Sex: Female

DRUGS (2)
  1. RALOXIFENE HYDROCHLORIDE [Suspect]
     Indication: OSTEOPOROSIS POSTMENOPAUSAL
     Dosage: 60 MG, DAILY (1/D)
     Route: 048
     Dates: start: 20050509, end: 20060725
  2. ONEALFA [Concomitant]
     Dosage: 1 UG, DAILY (1/D)
     Route: 048
     Dates: start: 20051125, end: 20060725

REACTIONS (1)
  - ARTERIAL OCCLUSIVE DISEASE [None]
